FAERS Safety Report 23405175 (Version 1)
Quarter: 2024Q1

REPORT INFORMATION
  Report Type: Spontaneous
  Country: US (occurrence: US)
  Receive Date: 20240116
  Receipt Date: 20240116
  Transmission Date: 20240410
  Serious: Yes (Other)
  Sender: FDA-Public Use
  Company Number: US-BAYER-2024A002075

PATIENT
  Age: 19 Year
  Sex: Female

DRUGS (1)
  1. CORICIDIN HBP MAXIMUM STRENGTH COLD, COUGH AND FLU [Suspect]
     Active Substance: ACETAMINOPHEN\DEXTROMETHORPHAN HYDROBROMIDE\GUAIFENESIN
     Indication: Product used for unknown indication
     Dosage: 30 ML, Q4HR
     Route: 048

REACTIONS (4)
  - Haemoptysis [None]
  - Sputum purulent [None]
  - Pyrexia [Recovering/Resolving]
  - Cough [None]
